FAERS Safety Report 16627921 (Version 1)
Quarter: 2019Q3

REPORT INFORMATION
  Report Type: Spontaneous
  Country: KR (occurrence: KR)
  Receive Date: 20190724
  Receipt Date: 20190724
  Transmission Date: 20191004
  Serious: Yes (Hospitalization, Other)
  Sender: FDA-Public Use
  Company Number: KR-PFIZER INC-2019311845

PATIENT
  Sex: Male

DRUGS (1)
  1. CHAMPIX [Suspect]
     Active Substance: VARENICLINE TARTRATE
     Indication: SMOKING CESSATION THERAPY
     Dosage: UNK
     Route: 048
     Dates: start: 201804, end: 201804

REACTIONS (5)
  - Suicide attempt [Unknown]
  - Depression [Unknown]
  - Suicidal ideation [Not Recovered/Not Resolved]
  - Cerebral haemorrhage [Unknown]
  - Self esteem decreased [Unknown]

NARRATIVE: CASE EVENT DATE: 201804
